APPROVED DRUG PRODUCT: ALBUTEROL SULFATE
Active Ingredient: ALBUTEROL SULFATE
Strength: EQ 0.09MG BASE/INH
Dosage Form/Route: AEROSOL, METERED;INHALATION
Application: A209959 | Product #001 | TE Code: AB1
Applicant: CIPLA LTD
Approved: Apr 8, 2020 | RLD: No | RS: No | Type: RX